FAERS Safety Report 4428469-7 (Version None)
Quarter: 2004Q3

REPORT INFORMATION
  Report Type: 
  Country: None (occurrence: None)
  Receive Date: 20040816
  Receipt Date: 20040730
  Transmission Date: 20050211
  Serious: Yes (Hospitalization)
  Sender: FDA-Public Use
  Company Number: 200302006

PATIENT
  Age: 54 Year
  Sex: Female

DRUGS (3)
  1. BOTOX [Suspect]
     Indication: SKIN WRINKLING
     Dosage: 20 UNITS PRN IM
     Route: 030
     Dates: start: 20030127
  2. ALBUTEROL [Concomitant]
  3. LOTENSIN [Concomitant]

REACTIONS (11)
  - COUGH [None]
  - DRUG EFFECT DECREASED [None]
  - DYSPNOEA [None]
  - EYELID PTOSIS [None]
  - IMPAIRED WORK ABILITY [None]
  - MUSCULOSKELETAL STIFFNESS [None]
  - OROPHARYNGEAL SWELLING [None]
  - PHARYNGEAL ERYTHEMA [None]
  - UPPER RESPIRATORY TRACT INFECTION [None]
  - VIRAL INFECTION [None]
  - WHEEZING [None]
